FAERS Safety Report 9632089 (Version 3)
Quarter: 2013Q4

REPORT INFORMATION
  Report Type: Spontaneous
  Country: JP (occurrence: JP)
  Receive Date: 20131018
  Receipt Date: 20131206
  Transmission Date: 20140711
  Serious: Yes (Other)
  Sender: FDA-Public Use
  Company Number: JP-VERTEX PHARMACEUTICALS INC-2013-010471

PATIENT
  Age: 64 Year
  Sex: Female

DRUGS (5)
  1. TELAVIC [Suspect]
     Indication: HEPATITIS C
  2. PEGINTERFERON ALFA-2B [Suspect]
     Indication: HEPATITIS C
     Route: 058
  3. RIBAVIRIN [Suspect]
     Indication: HEPATITIS C
     Route: 048
  4. PREDNISOLONE [Suspect]
     Indication: SKIN DISORDER
     Dosage: 20 MG, QD
  5. ALL OTHER THERAPEUTIC PRODUCTS [Concomitant]
     Route: 048

REACTIONS (5)
  - Bone marrow failure [Unknown]
  - Peritonsillar abscess [Unknown]
  - Muscle abscess [Unknown]
  - Diabetes mellitus [Unknown]
  - Skin disorder [Unknown]
